FAERS Safety Report 17804897 (Version 1)
Quarter: 2020Q2

REPORT INFORMATION
  Report Type: Spontaneous
  Country: ES (occurrence: ES)
  Receive Date: 20200520
  Receipt Date: 20200520
  Transmission Date: 20200714
  Serious: Yes (Other)
  Sender: FDA-Public Use
  Company Number: ES-TEVA-2020-ES-1236797

PATIENT
  Age: 24 Year
  Sex: Male

DRUGS (5)
  1. LOPINAVIR/RITONAVIR SANDOZ 200 MG/50 MG COMPRIMIDOS RECUBIERTOS CON PE [Suspect]
     Active Substance: LOPINAVIR\RITONAVIR
     Indication: COVID-19 PNEUMONIA
     Dosage: 4 DOSAGE FORMS DAILY; 200 MG / 50 MG
     Route: 048
     Dates: start: 20200316, end: 20200318
  2. INTERFERON BETA-1B (2305OD) [Suspect]
     Active Substance: INTERFERON BETA-1B
     Indication: COVID-19 PNEUMONIA
     Dosage: 0.25 MG
     Route: 058
     Dates: start: 20200313, end: 20200313
  3. CLOROQUINA [CHLOROQUINE] [Suspect]
     Active Substance: CHLOROQUINE
     Indication: COVID-19 PNEUMONIA
     Dosage: 310 MILLIGRAM DAILY;
     Route: 048
     Dates: start: 20200317, end: 20200319
  4. HIDROXICLOROQUINA (2143A) [Suspect]
     Active Substance: HYDROXYCHLOROQUINE
     Dosage: 400 MG
     Route: 048
     Dates: start: 20200320, end: 20200325
  5. HIDROXICLOROQUINA (2143A) [Suspect]
     Active Substance: HYDROXYCHLOROQUINE
     Indication: COVID-19 PNEUMONIA
     Dosage: 400 MILLIGRAM DAILY;
     Route: 048
     Dates: start: 20200314, end: 20200316

REACTIONS (1)
  - Hepatitis [Unknown]

NARRATIVE: CASE EVENT DATE: 20200322
